FAERS Safety Report 13140468 (Version 1)
Quarter: 2017Q1

REPORT INFORMATION
  Report Type: Spontaneous
  Country: US (occurrence: US)
  Receive Date: 20170123
  Receipt Date: 20170123
  Transmission Date: 20170428
  Serious: No
  Sender: FDA-Public Use
  Company Number: US-UNITED THERAPEUTICS-UNT-2016-017175

PATIENT
  Age: 61 Year
  Sex: Female
  Weight: 63.99 kg

DRUGS (1)
  1. REMODULIN [Suspect]
     Active Substance: TREPROSTINIL
     Indication: PULMONARY ARTERIAL HYPERTENSION
     Dosage: 0.009 ?G/KG, CONTINUING
     Route: 041
     Dates: start: 20161007

REACTIONS (3)
  - Malaise [Unknown]
  - Feeling abnormal [Unknown]
  - Nuclear magnetic resonance imaging [Unknown]

NARRATIVE: CASE EVENT DATE: 20161007
